FAERS Safety Report 16397829 (Version 1)
Quarter: 2019Q2

REPORT INFORMATION
  Report Type: Report from Study
  Country: PK (occurrence: PK)
  Receive Date: 20190606
  Receipt Date: 20190606
  Transmission Date: 20190711
  Serious: Yes (Other)
  Sender: FDA-Public Use
  Company Number: PHHY2019PK070169

PATIENT
  Age: 39 Year
  Sex: Male
  Weight: 71 kg

DRUGS (2)
  1. GLIVEC [Suspect]
     Active Substance: IMATINIB MESYLATE
     Dosage: 300 MG, BID
     Route: 048
     Dates: start: 20190325, end: 20190525
  2. GLIVEC [Suspect]
     Active Substance: IMATINIB MESYLATE
     Indication: CHRONIC MYELOID LEUKAEMIA
     Dosage: 400 MG, QD
     Route: 048
     Dates: start: 20161220, end: 20190325

REACTIONS (2)
  - Platelet count increased [Not Recovered/Not Resolved]
  - White blood cell count increased [Not Recovered/Not Resolved]

NARRATIVE: CASE EVENT DATE: 20190325
